FAERS Safety Report 8177517-X (Version None)
Quarter: 2012Q1

REPORT INFORMATION
  Report Type: 
  Country: None (occurrence: None)
  Receive Date: 20120301
  Receipt Date: 20120221
  Transmission Date: 20120608
  Serious: Yes (Hospitalization)
  Sender: FDA-Public Use
  Company Number: US-ACTELION-A-US2012-61519

PATIENT

DRUGS (2)
  1. SILDENAFIL [Concomitant]
     Dosage: UNK
  2. EPOPROSTENOL SODIUM [Suspect]
     Indication: PULMONARY ARTERIAL HYPERTENSION
     Dosage: 59.5 NG/KG, PER MIN
     Route: 042
     Dates: start: 20110721

REACTIONS (5)
  - CELLULITIS [None]
  - PAIN IN EXTREMITY [None]
  - CONDITION AGGRAVATED [None]
  - ERYTHEMA [None]
  - PULMONARY HYPERTENSION [None]
